FAERS Safety Report 9878859 (Version 1)
Quarter: 2014Q1

REPORT INFORMATION
  Report Type: Spontaneous
  Country: US (occurrence: US)
  Receive Date: 20140206
  Receipt Date: 20140206
  Transmission Date: 20141002
  Serious: No
  Sender: FDA-Public Use
  Company Number: US-ALLERGAN-1315151US

PATIENT
  Age: 42 Year
  Sex: Female

DRUGS (2)
  1. BOTOX [Suspect]
     Indication: TORTICOLLIS
     Dosage: 250 UNITS, SINGLE
  2. BOTOX [Suspect]
     Indication: HEADACHE

REACTIONS (5)
  - Rash [Unknown]
  - Headache [Unknown]
  - Dyspnoea [Unknown]
  - Dysphonia [Unknown]
  - Muscular weakness [Unknown]
